FAERS Safety Report 11599129 (Version 1)
Quarter: 2015Q4

REPORT INFORMATION
  Report Type: Spontaneous
  Country: DE (occurrence: DE)
  Receive Date: 20151006
  Receipt Date: 20151006
  Transmission Date: 20160304
  Serious: Yes (Hospitalization, Other)
  Sender: FDA-Public Use
  Company Number: DE-MYLANLABS-2015M1032945

PATIENT

DRUGS (4)
  1. MIRTAZAPIN DURA 15MG FILMTABLETTEN [Suspect]
     Active Substance: MIRTAZAPINE
     Indication: PRODUCT USED FOR UNKNOWN INDICATION
     Dosage: 15 MG (AT LEAST 10 TABLETS AT ONCE)
     Route: 048
  2. VOMEX A [Suspect]
     Active Substance: DIMENHYDRINATE
     Indication: PRODUCT USED FOR UNKNOWN INDICATION
     Dosage: 50 MG, (AT LEAST 20 TABLETS AT ONCE)
     Route: 048
  3. TRIMIPRAMIN AL /00051802/ [Suspect]
     Active Substance: TRIMIPRAMINE MALEATE
     Indication: PRODUCT USED FOR UNKNOWN INDICATION
     Dosage: 40 MG/ML, (UNKNOWN AMOUNT ONCE)
     Route: 048
  4. ZOPICLONE [Suspect]
     Active Substance: ZOPICLONE
     Indication: PRODUCT USED FOR UNKNOWN INDICATION
     Dosage: 3.75 MG, (10 TABLETS AT ONCE)
     Route: 048

REACTIONS (6)
  - Suicide attempt [Unknown]
  - Overdose [Unknown]
  - Seizure [Unknown]
  - Mydriasis [Unknown]
  - Sluggishness [Unknown]
  - Coma [Unknown]
